FAERS Safety Report 7507866-7 (Version None)
Quarter: 2011Q2

REPORT INFORMATION
  Report Type: 
  Country: None (occurrence: None)
  Receive Date: 20110527
  Receipt Date: 20081103
  Transmission Date: 20111010
  Serious: No
  Sender: FDA-Public Use
  Company Number: 2008BI029593

PATIENT
  Age: 39 Year
  Sex: Female

DRUGS (1)
  1. TYSABRI [Suspect]
     Indication: MULTIPLE SCLEROSIS
     Route: 042
     Dates: start: 20081021

REACTIONS (4)
  - MULTIPLE SCLEROSIS RELAPSE [None]
  - ASTHENIA [None]
  - DEPRESSION [None]
  - FATIGUE [None]
